FAERS Safety Report 6152389-3 (Version None)
Quarter: 2009Q2

REPORT INFORMATION
  Report Type: 
  Country: None (occurrence: None)
  Receive Date: 20090409
  Receipt Date: 20090327
  Transmission Date: 20091009
  Serious: No
  Sender: FDA-Public Use
  Company Number: 232593K09USA

PATIENT
  Age: 27 Year
  Sex: Male
  Weight: 118 kg

DRUGS (4)
  1. REBIF [Suspect]
     Indication: MULTIPLE SCLEROSIS
     Dosage: 44 MCG, 3 IN 1 WEEKS, SUBCUTANEOUS
     Route: 058
     Dates: start: 20080211
  2. COUMADIN [Concomitant]
  3. LISINOPRIL [Concomitant]
  4. PRAVASTATIN [Concomitant]

REACTIONS (4)
  - PLEURISY [None]
  - REFUSAL OF TREATMENT BY PATIENT [None]
  - SINUSITIS [None]
  - WEIGHT DECREASED [None]
